FAERS Safety Report 4638743-7 (Version None)
Quarter: 2005Q2

REPORT INFORMATION
  Report Type: 
  Country: None (occurrence: None)
  Receive Date: 20050418
  Receipt Date: 20050418
  Transmission Date: 20051028
  Serious: Yes (Death)
  Sender: FDA-Public Use
  Company Number: None

PATIENT
  Sex: Female
  Weight: 87 kg

DRUGS (6)
  1. ALL-TRANS RETINOIC ACID [Suspect]
     Indication: ACUTE PROMYELOCYTIC LEUKAEMIA
     Dosage: SEE IMAGE
     Route: 048
     Dates: start: 20050309
  2. DAUNOMYCIN [Suspect]
     Dosage: SEE IMAGE
     Route: 040
  3. CYTARABINE [Suspect]
     Dosage: 200 MG/M2/DAY CIV OVER 7 DAYS STARTING ON DAY 3.
     Route: 042
  4. ARSENIC TRIOXIDE [Suspect]
     Dosage: 0.15 MG/KG IV OVER 2 HR QW ON DAYS 1-5 FOR 5 WEEKS
     Route: 042
  5. MERCAPTOPURINE [Suspect]
     Dosage: 60 MG/M2 PO QD
     Route: 048
  6. METHOTREXATE [Suspect]
     Dosage: 20 MG/M2 PO ONCE A WEEK

REACTIONS (2)
  - MOUTH ULCERATION [None]
  - STOMATITIS [None]
